FAERS Safety Report 4366710-X (Version None)
Quarter: 2004Q2

REPORT INFORMATION
  Report Type: 
  Country: None (occurrence: None)
  Receive Date: 20040527
  Receipt Date: 20040510
  Transmission Date: 20050107
  Serious: Yes (Death, Other)
  Sender: FDA-Public Use
  Company Number: A-US2004-06214

PATIENT
  Age: 35 Year
  Sex: Female

DRUGS (3)
  1. TRACLEER [Suspect]
     Indication: PULMONARY HYPERTENSION
     Dosage: 125 MG, BID, ORAL;  62.5 MG, BID, ORAL;  62.5 MG, BID, ORAL
     Route: 048
     Dates: start: 20011201, end: 20020101
  2. TRACLEER [Suspect]
     Indication: PULMONARY HYPERTENSION
     Dosage: 125 MG, BID, ORAL;  62.5 MG, BID, ORAL;  62.5 MG, BID, ORAL
     Route: 048
     Dates: start: 20020101, end: 20020531
  3. TRACLEER [Suspect]
     Indication: PULMONARY HYPERTENSION
     Dosage: 125 MG, BID, ORAL;  62.5 MG, BID, ORAL;  62.5 MG, BID, ORAL
     Route: 048
     Dates: start: 20020531, end: 20020717

REACTIONS (5)
  - ALANINE AMINOTRANSFERASE INCREASED [None]
  - ASPARTATE AMINOTRANSFERASE INCREASED [None]
  - COMPLICATIONS OF TRANSPLANT SURGERY [None]
  - LIVER FUNCTION TEST ABNORMAL [None]
  - LUNG TRANSPLANT [None]
